FAERS Safety Report 8097502-6 (Version None)
Quarter: 2012Q1

REPORT INFORMATION
  Report Type: 
  Country: None (occurrence: None)
  Receive Date: 20120129
  Receipt Date: 20120119
  Transmission Date: 20120608
  Serious: Yes (Other)
  Sender: FDA-Public Use
  Company Number: JP-BRISTOL-MYERS SQUIBB COMPANY-16365843

PATIENT
  Age: 19 Year
  Sex: Male

DRUGS (5)
  1. ABILIFY [Suspect]
     Route: 048
  2. NEMONAPRIDE [Concomitant]
     Indication: SALIVARY HYPERSECRETION
  3. NEMONAPRIDE [Concomitant]
     Indication: BRADYKINESIA
  4. NEMONAPRIDE [Concomitant]
     Indication: DYSPHAGIA
  5. NEMONAPRIDE [Concomitant]
     Indication: SEXUAL DYSFUNCTION

REACTIONS (3)
  - ABNORMAL BEHAVIOUR [None]
  - RESTLESSNESS [None]
  - DISTURBANCE IN SOCIAL BEHAVIOUR [None]
